FAERS Safety Report 6590405-5 (Version None)
Quarter: 2010Q1

REPORT INFORMATION
  Report Type: 
  Country: None (occurrence: None)
  Receive Date: 20100219
  Receipt Date: 20100211
  Transmission Date: 20100710
  Serious: Yes (Hospitalization)
  Sender: FDA-Public Use
  Company Number: SE-ROCHE-679518

PATIENT
  Age: 20 Year
  Sex: Female

DRUGS (1)
  1. LARIAM [Suspect]
     Indication: PROPHYLAXIS
     Dosage: REPORTED AS LARIAM TABL. DOSE REPORTED AS 250 MGW
     Route: 048
     Dates: start: 20090915, end: 20091128

REACTIONS (1)
  - PSYCHOTIC DISORDER [None]
